FAERS Safety Report 5568356-4 (Version None)
Quarter: 2007Q4

REPORT INFORMATION
  Report Type: 
  Country: None (occurrence: None)
  Receive Date: 20071220
  Receipt Date: 20071213
  Transmission Date: 20080405
  Serious: Yes (Hospitalization)
  Sender: FDA-Public Use
  Company Number: PHHY2007MX00931

PATIENT
  Age: 84 Year
  Sex: Female

DRUGS (7)
  1. DIOVAN [Suspect]
     Indication: HYPERTENSION
     Dosage: 1 TABLET (320 MG) PER DAY
     Route: 048
     Dates: end: 20070901
  2. DIOVAN [Suspect]
     Dosage: 4 TABLETS (80 MG) PER DAY
     Route: 048
     Dates: start: 20070901, end: 20071201
  3. DIOVAN [Suspect]
     Dosage: 2 TABLETS (80) MG/DAY
     Route: 048
     Dates: start: 20071201
  4. METOPROLOL SUCCINATE [Concomitant]
     Indication: HYPERTENSION
     Dosage: 1 TABLET PER DAY
     Route: 048
  5. GLYBURIDE [Concomitant]
     Indication: BLOOD GLUCOSE
     Dosage: 1 TABLET PER DAY
     Route: 048
  6. DILACORON [Concomitant]
     Indication: HYPERTENSION
  7. GLUCOPHAGE [Concomitant]
     Indication: BLOOD GLUCOSE
     Dosage: 1 TABLET PER DAY
     Route: 048

REACTIONS (3)
  - ANOREXIA [None]
  - GASTRIC DISORDER [None]
  - HYPOGLYCAEMIA [None]
